FAERS Safety Report 5858106-6 (Version None)
Quarter: 2008Q3

REPORT INFORMATION
  Report Type: 
  Country: None (occurrence: None)
  Receive Date: 20080826
  Receipt Date: 20080820
  Transmission Date: 20090109
  Serious: Yes (Hospitalization)
  Sender: FDA-Public Use
  Company Number: JP-EISAI MEDICAL RESEARCH-E2090-00528-CLI-JP

PATIENT
  Sex: Male

DRUGS (2)
  1. ZONISAMIDE [Suspect]
     Indication: PARKINSON'S DISEASE
     Route: 048
  2. CARBIDOPA + LEVODOPA [Concomitant]

REACTIONS (1)
  - DOPAMINE DYSREGULATION SYNDROME [None]
